FAERS Safety Report 24105090 (Version 8)
Quarter: 2024Q4

REPORT INFORMATION
  Report Type: Spontaneous
  Country: US (occurrence: US)
  Receive Date: 20240717
  Receipt Date: 20241220
  Transmission Date: 20250115
  Serious: Yes (Hospitalization, Other)
  Sender: SANOFI AVENTIS
  Company Number: US-SA-2023SA403514

PATIENT
  Age: 73 Year
  Sex: Male
  Weight: 61.1 kg

DRUGS (24)
  1. FLOMAX [Suspect]
     Active Substance: TAMSULOSIN HYDROCHLORIDE
     Dosage: UNK
     Dates: start: 20230825
  2. OLAPARIB [Suspect]
     Active Substance: OLAPARIB
     Indication: Adenocarcinoma
     Dosage: 600 MG, BID
     Route: 048
     Dates: start: 20230928, end: 20231023
  3. OLAPARIB [Suspect]
     Active Substance: OLAPARIB
     Dosage: 100 MG, BID
     Route: 048
     Dates: start: 20240202, end: 20240218
  4. OLAPARIB [Suspect]
     Active Substance: OLAPARIB
     Dosage: 100 MG, BID
     Route: 048
     Dates: start: 20240219, end: 20240314
  5. OLAPARIB [Suspect]
     Active Substance: OLAPARIB
     Dosage: 100 MG, QD
     Route: 048
     Dates: start: 20240315, end: 20240412
  6. LIPITOR [Concomitant]
     Active Substance: ATORVASTATIN CALCIUM
     Dosage: UNK
     Dates: start: 20230825
  7. LISINOPRIL [Concomitant]
     Active Substance: LISINOPRIL
     Dosage: UNK
     Dates: start: 20230825
  8. OMNIPAQUE [Concomitant]
     Active Substance: IOHEXOL
     Dosage: UNK
     Dates: start: 20230913, end: 20230913
  9. ELIGARD [Concomitant]
     Active Substance: LEUPROLIDE ACETATE
     Dosage: UNK
     Dates: start: 202001
  10. ELIGARD [Concomitant]
     Active Substance: LEUPROLIDE ACETATE
  11. ACETAMINOPHEN [Concomitant]
     Active Substance: ACETAMINOPHEN
     Dosage: UNK
     Dates: start: 20231013
  12. TEMOVATE [Concomitant]
     Active Substance: CLOBETASOL PROPIONATE
     Dosage: UNK
     Dates: start: 20231110
  13. TEMOVATE [Concomitant]
     Active Substance: CLOBETASOL PROPIONATE
  14. KENALOG [Concomitant]
     Active Substance: TRIAMCINOLONE ACETONIDE
     Dosage: UNK
     Dates: start: 20240119
  15. IBUPROFEN [Concomitant]
     Active Substance: IBUPROFEN
     Dosage: UNK
     Dates: start: 20240119
  16. PREDNISONE [Concomitant]
     Active Substance: PREDNISONE
     Dosage: UNK
     Dates: start: 20240223
  17. XARELTO [Concomitant]
     Active Substance: RIVAROXABAN
     Dosage: 15 MG, BID
     Route: 048
     Dates: start: 20240405
  18. XARELTO [Concomitant]
     Active Substance: RIVAROXABAN
  19. ELIQUIS [Concomitant]
     Active Substance: APIXABAN
     Dosage: 10 MG, BID
     Route: 048
     Dates: start: 20240405
  20. ELIQUIS [Concomitant]
     Active Substance: APIXABAN
  21. OXYCODONE [Concomitant]
     Active Substance: OXYCODONE
     Dosage: UNK
     Dates: start: 20240119
  22. TECHNETIUM (99MTC) MEDRONATE [Concomitant]
     Dosage: UNK
     Dates: start: 20230913, end: 20230913
  23. TYLENOL [Concomitant]
     Active Substance: ACETAMINOPHEN
     Dosage: UNK
     Dates: start: 20231013
  24. SODIUM CHLORIDE [Concomitant]
     Active Substance: SODIUM CHLORIDE
     Dosage: UNK
     Dates: start: 20231124, end: 20231124

REACTIONS (3)
  - Anaemia [Recovered/Resolved with Sequelae]
  - Deep vein thrombosis [Not Recovered/Not Resolved]
  - Humerus fracture [Recovered/Resolved]

NARRATIVE: CASE EVENT DATE: 20231013
